FAERS Safety Report 4850810-1 (Version None)
Quarter: 2005Q4

REPORT INFORMATION
  Report Type: 
  Country: None (occurrence: None)
  Receive Date: 20051208
  Receipt Date: 20051208
  Transmission Date: 20060501
  Serious: Yes (Hospitalization)
  Sender: FDA-Public Use
  Company Number: None

PATIENT
  Age: 72 Year
  Sex: Female
  Weight: 73.0291 kg

DRUGS (14)
  1. ADRIAMYCIN [Suspect]
     Indication: BREAST CANCER
     Dosage: 108 MG IV
     Route: 042
     Dates: start: 20051024
  2. ADRIAMYCIN [Suspect]
     Indication: BREAST CANCER
     Dosage: 108 MG IV
     Route: 042
     Dates: start: 20051114
  3. ADRIAMYCIN [Suspect]
     Indication: BREAST CANCER
     Dosage: 108 MG IV
     Route: 042
     Dates: start: 20051205
  4. CYTOXAN [Suspect]
     Indication: BREAST CANCER
     Dosage: 1080 MG IV
     Route: 042
     Dates: start: 20051024
  5. CYTOXAN [Suspect]
     Indication: BREAST CANCER
     Dosage: 1080 MG IV
     Route: 042
     Dates: start: 20051114
  6. CYTOXAN [Suspect]
     Indication: BREAST CANCER
     Dosage: 1080 MG IV
     Route: 042
     Dates: start: 20051205
  7. GCSF [Concomitant]
  8. SCOPOLAMIN PATCH [Concomitant]
  9. ASPIRIN [Concomitant]
  10. COZAAR [Concomitant]
  11. PROTONIX [Concomitant]
  12. ZOCOR [Concomitant]
  13. TRIAMTERINE [Concomitant]
  14. HYDROCODONE [Concomitant]

REACTIONS (2)
  - BLOOD CREATININE INCREASED [None]
  - CYSTITIS [None]
